FAERS Safety Report 5937103-6 (Version None)
Quarter: 2008Q4

REPORT INFORMATION
  Report Type: 
  Country: None (occurrence: None)
  Receive Date: 20081031
  Receipt Date: 20081022
  Transmission Date: 20090506
  Serious: Yes (Other)
  Sender: FDA-Public Use
  Company Number: PHHY2008BR25978

PATIENT

DRUGS (3)
  1. DIOVAN [Suspect]
     Indication: HYPERTENSION
     Dosage: 1 DF, QD
     Route: 048
  2. DIOVAN HCT [Suspect]
     Indication: HYPERTENSION
     Dosage: 1 DF, QD
     Route: 048
  3. EXFORGE [Suspect]
     Indication: HYPERTENSION
     Dosage: 1 DF, QD
     Route: 048

REACTIONS (10)
  - APPETITE DISORDER [None]
  - BLOOD PRESSURE INADEQUATELY CONTROLLED [None]
  - CHEST PAIN [None]
  - ERYTHEMA [None]
  - GAIT DISTURBANCE [None]
  - JOINT SWELLING [None]
  - PAIN [None]
  - PRURITUS [None]
  - RHEUMATOID ARTHRITIS [None]
  - SWELLING [None]
